FAERS Safety Report 18401891 (Version 1)
Quarter: 2020Q4

REPORT INFORMATION
  Report Type: Spontaneous
  Country: US (occurrence: US)
  Receive Date: 20201019
  Receipt Date: 20201019
  Transmission Date: 20210114
  Serious: Yes (Other)
  Sender: FDA-Public Use
  Company Number: NVSC2020US278504

PATIENT
  Age: 81 Year
  Sex: Female

DRUGS (3)
  1. PREDNISOLONE ACETATE. [Suspect]
     Active Substance: PREDNISOLONE ACETATE
     Dosage: UNK, 8QD
     Route: 065
  2. PREDNISOLONE ACETATE. [Suspect]
     Active Substance: PREDNISOLONE ACETATE
     Indication: CORNEAL GRAFT REJECTION
     Dosage: UNK, Q6H
     Route: 065
  3. PREDNISOLONE ACETATE. [Suspect]
     Active Substance: PREDNISOLONE ACETATE
     Dosage: UNK, 6QD
     Route: 065

REACTIONS (3)
  - Cytomegalovirus infection [Unknown]
  - Product use in unapproved indication [Unknown]
  - Corneal endotheliitis [Unknown]
